FAERS Safety Report 23314961 (Version 1)
Quarter: 2023Q4

REPORT INFORMATION
  Report Type: Report from Study
  Country: US (occurrence: US)
  Receive Date: 20231219
  Receipt Date: 20231219
  Transmission Date: 20240109
  Serious: No
  Sender: FDA-Public Use
  Company Number: US-HLS-202301031

PATIENT
  Sex: Male

DRUGS (1)
  1. CLOZAPINE [Suspect]
     Active Substance: CLOZAPINE
     Indication: Intermittent explosive disorder
     Dosage: 25 MG THREE TIMES A DAY
     Route: 048
     Dates: start: 20150126

REACTIONS (2)
  - Agitation [Unknown]
  - Off label use [Unknown]
